FAERS Safety Report 14481321 (Version 2)
Quarter: 2018Q1

REPORT INFORMATION
  Report Type: Spontaneous
  Country: DE (occurrence: DE)
  Receive Date: 20180202
  Receipt Date: 20180303
  Transmission Date: 20180509
  Serious: Yes (Other)
  Sender: FDA-Public Use
  Company Number: DE-B.I. PHARMACEUTICALS,INC./RIDGEFIELD-2017-BI-060800

PATIENT
  Age: 71 Year
  Sex: Female
  Weight: 51 kg

DRUGS (3)
  1. GILOTRIF [Suspect]
     Active Substance: AFATINIB
     Indication: ADENOCARCINOMA
     Route: 048
     Dates: start: 20170514, end: 20170823
  2. GILOTRIF [Suspect]
     Active Substance: AFATINIB
     Indication: EGFR GENE MUTATION
     Route: 048
     Dates: start: 201706, end: 20170927
  3. GILOTRIF [Suspect]
     Active Substance: AFATINIB
     Route: 048
     Dates: end: 201712

REACTIONS (22)
  - Oral mucosal erythema [Unknown]
  - Oral disorder [Unknown]
  - Weight decreased [Unknown]
  - Malignant neoplasm progression [Unknown]
  - Oral pain [Unknown]
  - Paronychia [Unknown]
  - Erythema [Unknown]
  - Pain [Unknown]
  - Epidermolysis [Unknown]
  - Psoriasis [Recovering/Resolving]
  - Skin ulcer [Recovering/Resolving]
  - Diarrhoea [Unknown]
  - Dry skin [Unknown]
  - Erythema [Unknown]
  - Basosquamous carcinoma [Unknown]
  - Skin ulcer [Unknown]
  - Inflammation [Unknown]
  - Aphthous ulcer [Unknown]
  - Pruritus [Unknown]
  - Skin fissures [Unknown]
  - Skin fissures [Unknown]
  - Psoriasis [Recovering/Resolving]

NARRATIVE: CASE EVENT DATE: 201705
